FAERS Safety Report 8278147 (Version 7)
Quarter: 2013Q4

REPORT INFORMATION
  Report Type: Spontaneous
  Country: US (occurrence: None)
  Receive Date: 20111207
  Receipt Date: 20131226
  Transmission Date: 20140711
  Serious: Yes (Other)
  Sender: FDA-Public Use
  Company Number: PHEH2011US009729

PATIENT
  Age: 24 Year
  Sex: Male
  Weight: 100.5 kg

DRUGS (5)
  1. TASIGNA [Suspect]
     Indication: CHRONIC MYELOID LEUKAEMIA
     Route: 048
     Dates: start: 20111011
  2. SYNTHROID [Concomitant]
  3. ALLOPURINOL [Concomitant]
  4. DIAZEPAM (DIAZEPAM) [Concomitant]
  5. XANAX [Concomitant]

REACTIONS (5)
  - Liver function test abnormal [None]
  - Nausea [None]
  - Feeling abnormal [None]
  - Aspartate aminotransferase increased [None]
  - Alanine aminotransferase increased [None]
